FAERS Safety Report 4661816-X (Version None)
Quarter: 2005Q2

REPORT INFORMATION
  Report Type: 
  Country: None (occurrence: None)
  Receive Date: 20050513
  Receipt Date: 20050505
  Transmission Date: 20051028
  Serious: Yes (Hospitalization)
  Sender: FDA-Public Use
  Company Number: BR-ABBOTT-05P-020-0300208-00

PATIENT
  Age: 4 Year
  Sex: Male
  Weight: 20 kg

DRUGS (6)
  1. KLARICID [Suspect]
     Indication: SINUSITIS
     Route: 048
     Dates: start: 20050401
  2. KLARICID [Suspect]
     Indication: COUGH
  3. SALBUTAMOL SULFATE [Concomitant]
     Indication: COUGH
     Route: 048
     Dates: start: 20050401
  4. PASSION FLOWER/CRATAEGUS/SALIX [Concomitant]
     Indication: UNEVALUABLE EVENT
     Route: 048
     Dates: start: 20050501
  5. BUDESONIDE [Concomitant]
     Indication: ASTHMA
     Route: 055
     Dates: start: 20050503
  6. BROMOPRIDE [Concomitant]
     Indication: ABDOMINAL PAIN UPPER
     Route: 050

REACTIONS (2)
  - SWELLING [None]
  - TREMOR [None]
